FAERS Safety Report 23947856 (Version 2)
Quarter: 2024Q2

REPORT INFORMATION
  Report Type: Report from Study
  Country: US (occurrence: US)
  Receive Date: 20240606
  Receipt Date: 20240611
  Transmission Date: 20240715
  Serious: No
  Sender: FDA-Public Use
  Company Number: US-BIOGEN-2024BI01267050

PATIENT
  Age: 40 Year
  Sex: Female

DRUGS (1)
  1. ZURZUVAE [Suspect]
     Active Substance: ZURANOLONE
     Indication: Perinatal depression
     Route: 050
     Dates: start: 20240524

REACTIONS (4)
  - Increased appetite [Unknown]
  - Clumsiness [Unknown]
  - Brain fog [Unknown]
  - Dizziness [Unknown]

NARRATIVE: CASE EVENT DATE: 20240525
